FAERS Safety Report 17257911 (Version 1)
Quarter: 2020Q1

REPORT INFORMATION
  Report Type: Spontaneous
  Country: HR (occurrence: HR)
  Receive Date: 20200110
  Receipt Date: 20200110
  Transmission Date: 20200409
  Serious: Yes (Other)
  Sender: FDA-Public Use
  Company Number: HR-TEVA-2020-HR-1164528

PATIENT
  Sex: Male

DRUGS (3)
  1. DIPHTHERIA AND TETANUS TOXOIDS AND PERTUSSIS VACCINE ADSORBED NOS [Suspect]
     Active Substance: DIPHTHERIA AND TETANUS TOXOIDS AND PERTUSSIS VACCINE
     Indication: PROPHYLAXIS
     Route: 065
     Dates: start: 2006, end: 2006
  2. DIPHTHERIA AND TETANUS TOXOIDS AND POLIOMYELITIS VACCINE NOS [Suspect]
     Active Substance: DIPHTHERIA AND TETANUS TOXOIDS AND POLIOVIRUS VACCINE ANTIGENS
     Indication: PROPHYLAXIS
     Route: 065
     Dates: start: 20140120, end: 20140120
  3. KLAVOCIN [Suspect]
     Active Substance: AMOXICILLIN\CLAVULANIC ACID
     Route: 065

REACTIONS (8)
  - Hallucination [Recovered/Resolved]
  - Hallucination, auditory [Recovered/Resolved]
  - Ear infection [Recovered/Resolved]
  - Hypersensitivity [Unknown]
  - Screaming [Recovered/Resolved]
  - Hallucination, visual [Recovered/Resolved]
  - Ear discomfort [Recovered/Resolved]
  - Laryngitis [Recovered/Resolved]

NARRATIVE: CASE EVENT DATE: 2006
